FAERS Safety Report 13623093 (Version 1)
Quarter: 2017Q2

REPORT INFORMATION
  Report Type: Spontaneous
  Country: US (occurrence: US)
  Receive Date: 20170607
  Receipt Date: 20170607
  Transmission Date: 20170830
  Serious: No
  Sender: FDA-Public Use
  Company Number: US-BIOGEN-2017BI00411854

PATIENT
  Sex: Female

DRUGS (2)
  1. TYSABRI [Suspect]
     Active Substance: NATALIZUMAB
     Indication: MULTIPLE SCLEROSIS
     Route: 065
     Dates: start: 20120718, end: 20130401
  2. TYSABRI [Suspect]
     Active Substance: NATALIZUMAB
     Dates: start: 20170220

REACTIONS (2)
  - Peripheral swelling [Unknown]
  - Limb injury [Unknown]
